FAERS Safety Report 5570403-0 (Version None)
Quarter: 2007Q4

REPORT INFORMATION
  Report Type: 
  Country: None (occurrence: None)
  Receive Date: 20071221
  Receipt Date: 20071212
  Transmission Date: 20080405
  Serious: Yes (Hospitalization, Disabling)
  Sender: FDA-Public Use
  Company Number: PHFR2007GB03601

PATIENT
  Age: 50 Year
  Sex: Male

DRUGS (10)
  1. ZOMETA [Suspect]
     Dosage: 4 MG
     Route: 042
     Dates: start: 20071129
  2. TRANSFUSIONS [Concomitant]
  3. DURAGESIC-100 [Concomitant]
     Dosage: 100 MG/DAY
     Route: 062
     Dates: start: 20070901
  4. GABAPENTIN [Concomitant]
     Dosage: 600 MG, TID
     Route: 048
  5. LANSOPRAZOLE [Concomitant]
     Dosage: 30 MG, QD
     Route: 048
  6. LEVOTHYROXINE SODIUM [Concomitant]
     Dosage: 200 UG, QD
     Route: 048
  7. NAPROXEN [Concomitant]
     Dosage: 500 MG, BID
     Route: 048
     Dates: end: 20071128
  8. OXYNORM [Concomitant]
     Dosage: 30 MG
     Route: 048
     Dates: start: 20070901
  9. ACETAMINOPHEN [Concomitant]
     Dosage: 500 MG, QID
     Route: 048
  10. TARCEVA [Concomitant]
     Dosage: 150 MG, QD
     Route: 048
     Dates: start: 20071119, end: 20071126

REACTIONS (3)
  - CONFUSIONAL STATE [None]
  - PYREXIA [None]
  - TACHYCARDIA [None]
